FAERS Safety Report 24858161 (Version 1)
Quarter: 2025Q1

REPORT INFORMATION
  Report Type: Spontaneous
  Country: US (occurrence: US)
  Receive Date: 20250117
  Receipt Date: 20250117
  Transmission Date: 20250409
  Serious: No
  Sender: SANOFI AVENTIS
  Company Number: US-SA-2025SA015230

PATIENT
  Age: 34 Year
  Sex: Female

DRUGS (1)
  1. DUPIXENT [Suspect]
     Active Substance: DUPILUMAB
     Indication: Nasal polyps
     Dosage: 300 MG, QOW
     Route: 058
     Dates: start: 20240927

REACTIONS (5)
  - Rhinorrhoea [Unknown]
  - Nasal congestion [Unknown]
  - Nasal obstruction [Unknown]
  - Illness [Unknown]
  - Eye pruritus [Unknown]

NARRATIVE: CASE EVENT DATE: 20250101
